FAERS Safety Report 7891929-0 (Version None)
Quarter: 2011Q4

REPORT INFORMATION
  Report Type: 
  Country: None (occurrence: None)
  Receive Date: 20111103
  Receipt Date: 20110811
  Transmission Date: 20120403
  Serious: No
  Sender: FDA-Public Use
  Company Number: US-AMGEN-USASP2011033893

PATIENT
  Age: 68 Year
  Sex: Female
  Weight: 61.678 kg

DRUGS (9)
  1. FOLIC ACID [Concomitant]
  2. METHOTREXATE [Concomitant]
  3. LASIX [Concomitant]
  4. SYNTHROID [Concomitant]
  5. ACTONEL [Concomitant]
  6. FLONASE [Concomitant]
  7. ENBREL [Suspect]
     Indication: RHEUMATOID ARTHRITIS
     Dosage: 50 MG, QWK
     Dates: start: 20040101
  8. NEXIUM [Concomitant]
  9. BENAZEPRIL HYDROCHLORIDE [Concomitant]

REACTIONS (1)
  - OSTEOPOROSIS POSTMENOPAUSAL [None]
